FAERS Safety Report 6230717-8 (Version None)
Quarter: 2009Q2

REPORT INFORMATION
  Report Type: 
  Country: None (occurrence: None)
  Receive Date: 20090611
  Receipt Date: 20090529
  Transmission Date: 20091009
  Serious: Yes (Death)
  Sender: FDA-Public Use
  Company Number: 2009JP003459

PATIENT
  Age: 56 Year
  Sex: Female

DRUGS (3)
  1. CEFTIZOXIME [Suspect]
     Indication: ANTIBIOTIC PROPHYLAXIS
     Dosage: 2 G, IV NOS
     Route: 042
     Dates: start: 20090507, end: 20090507
  2. KETOROLAC TROMETHAMINE       (KETOROLAC TROMETHAMINE) INJECTION [Concomitant]
  3. ZANTAC (RANITIDINE) INJECTION [Concomitant]

REACTIONS (2)
  - CONTINUOUS HAEMODIAFILTRATION [None]
  - ISOIMMUNE HAEMOLYTIC DISEASE [None]
